FAERS Safety Report 6757599-X (Version None)
Quarter: 2010Q2

REPORT INFORMATION
  Report Type: 
  Country: None (occurrence: None)
  Receive Date: 20100607
  Receipt Date: 20100521
  Transmission Date: 20101027
  Serious: No
  Sender: FDA-Public Use
  Company Number: US-B.I. PHARMACEUTICALS,INC./RIDGEFIELD-2010-BP-05416BP

PATIENT
  Age: 73 Year
  Sex: Female
  Weight: 78.02 kg

DRUGS (7)
  1. SPIRIVA [Suspect]
     Indication: CHRONIC OBSTRUCTIVE PULMONARY DISEASE
     Route: 055
  2. DIGOXIN [Concomitant]
  3. LASIX [Concomitant]
  4. LEVOXYL [Concomitant]
  5. ATENOLOL [Concomitant]
  6. SERTRALINE HCL [Concomitant]
  7. COUMADIN [Concomitant]

REACTIONS (1)
  - MUSCLE SPASMS [None]
